FAERS Safety Report 13046488 (Version 1)
Quarter: 2016Q4

REPORT INFORMATION
  Report Type: Spontaneous
  Country: US (occurrence: US)
  Receive Date: 20161220
  Receipt Date: 20161220
  Transmission Date: 20170207
  Serious: No
  Sender: FDA-Public Use
  Company Number: US-PFIZER INC-2016584112

PATIENT
  Age: 67 Year
  Sex: Female
  Weight: 75 kg

DRUGS (4)
  1. NOVOLOG [Concomitant]
     Active Substance: INSULIN ASPART
     Indication: TYPE 1 DIABETES MELLITUS
     Dosage: 5 IU, 4 TO 5 TIMES A DA
  2. TOUJEO [Concomitant]
     Active Substance: INSULIN GLARGINE
     Indication: TYPE 1 DIABETES MELLITUS
     Dosage: 16 IU, 1X/DAY AT NIGHT
  3. NEURONTIN [Suspect]
     Active Substance: GABAPENTIN
     Indication: MYOCARDIAL INFARCTION
     Dosage: 300 MG, 3X/DAY
     Route: 048
     Dates: start: 20161015, end: 201611
  4. NEURONTIN [Suspect]
     Active Substance: GABAPENTIN
     Dosage: UNK, 2X/DAY

REACTIONS (2)
  - Product use issue [Unknown]
  - Hallucination [Recovered/Resolved]

NARRATIVE: CASE EVENT DATE: 201610
